FAERS Safety Report 13794000 (Version 5)
Quarter: 2017Q3

REPORT INFORMATION
  Report Type: Report from Study
  Country: None (occurrence: RO)
  Receive Date: 20170726
  Receipt Date: 20170816
  Transmission Date: 20171127
  Serious: Yes (Hospitalization)
  Sender: FDA-Public Use
  Company Number: RO-ABBVIE-16P-135-1760610-00

PATIENT
  Age: 59 Year
  Sex: Female

DRUGS (7)
  1. ANXIAR [Suspect]
     Active Substance: LORAZEPAM
     Indication: PRODUCT USED FOR UNKNOWN INDICATION
     Route: 065
  2. VIMOVO [Concomitant]
     Active Substance: ESOMEPRAZOLE MAGNESIUM\NAPROXEN
     Indication: PRODUCT USED FOR UNKNOWN INDICATION
  3. REUMABLOC [Concomitant]
     Indication: PRODUCT USED FOR UNKNOWN INDICATION
  4. NEUROMULTIVIT [Concomitant]
     Active Substance: CYANOCOBALAMIN\PYRIDOXINE\THIAMINE
     Indication: PRODUCT USED FOR UNKNOWN INDICATION
     Dates: start: 201610
  5. DUODOPA [Suspect]
     Active Substance: CARBIDOPA\LEVODOPA
     Route: 050
     Dates: start: 2017
  6. DUODOPA [Suspect]
     Active Substance: CARBIDOPA\LEVODOPA
     Indication: PARKINSON^S DISEASE
     Dosage: MD 10 ML?ED 1.3 ML?CR 2.6 ML/HOUR?16 HOURS/24 HOURS
     Route: 050
     Dates: start: 20150224, end: 20170724
  7. AZILECT [Concomitant]
     Active Substance: RASAGILINE MESYLATE
     Indication: PRODUCT USED FOR UNKNOWN INDICATION
     Dates: start: 201502

REACTIONS (17)
  - Overdose [Unknown]
  - Depression [Not Recovered/Not Resolved]
  - Acute psychosis [Recovering/Resolving]
  - Stoma site hypergranulation [Recovering/Resolving]
  - Cervical dysplasia [Recovering/Resolving]
  - Psychomotor hyperactivity [Not Recovered/Not Resolved]
  - Dementia [Not Recovered/Not Resolved]
  - Hallucination [Recovered/Resolved]
  - Intentional medical device removal by patient [Unknown]
  - Muscle contracture [Unknown]
  - Depression [Recovering/Resolving]
  - Cognitive disorder [Not Recovered/Not Resolved]
  - Restlessness [Recovered/Resolved]
  - Disorientation [Not Recovered/Not Resolved]
  - Incorrect route of drug administration [Recovered/Resolved]
  - Gait disturbance [Unknown]
  - Hallucination [Not Recovered/Not Resolved]

NARRATIVE: CASE EVENT DATE: 201610
